APPROVED DRUG PRODUCT: TABRECTA
Active Ingredient: CAPMATINIB HYDROCHLORIDE
Strength: EQ 150MG BASE
Dosage Form/Route: TABLET;ORAL
Application: N213591 | Product #001
Applicant: NOVARTIS PHARMACEUTICAL CORP
Approved: May 6, 2020 | RLD: Yes | RS: No | Type: RX

PATENTS:
Patent 12084449 | Expires: Nov 19, 2027
Patent 8901123 | Expires: May 20, 2029
Patent 8420645 | Expires: Jun 5, 2031
Patent 10596178 | Expires: Jul 22, 2035
Patent 8461330 | Expires: Nov 19, 2027
Patent 7767675 | Expires: Nov 19, 2032
Patent 12208101 | Expires: Jul 22, 2035

EXCLUSIVITY:
Code: ODE-291 | Date: May 6, 2027